FAERS Safety Report 15516137 (Version 6)
Quarter: 2019Q2

REPORT INFORMATION
  Report Type: Spontaneous
  Country: US (occurrence: US)
  Receive Date: 20181017
  Receipt Date: 20190508
  Transmission Date: 20190711
  Serious: No
  Sender: FDA-Public Use
  Company Number: US-PFIZER INC-2018415855

PATIENT
  Age: 71 Year
  Sex: Female
  Weight: 64 kg

DRUGS (1)
  1. IBRANCE [Suspect]
     Active Substance: PALBOCICLIB
     Indication: BREAST CANCER FEMALE
     Dosage: 125 MG, UNK

REACTIONS (6)
  - Fatigue [Not Recovered/Not Resolved]
  - Nervousness [Unknown]
  - Memory impairment [Unknown]
  - Energy increased [Unknown]
  - Disturbance in attention [Unknown]
  - Confusional state [Unknown]
